FAERS Safety Report 11133134 (Version 1)
Quarter: 2015Q2

REPORT INFORMATION
  Report Type: Spontaneous
  Country: DE (occurrence: DE)
  Receive Date: 20150522
  Receipt Date: 20150522
  Transmission Date: 20150821
  Serious: Yes (Hospitalization)
  Sender: FDA-Public Use
  Company Number: DE-TEVA-563558GER

PATIENT
  Age: 66 Year
  Sex: Male
  Weight: 61.2 kg

DRUGS (4)
  1. VALPROINSAEURE [Suspect]
     Active Substance: VALPROIC ACID
     Dosage: 600 MILLIGRAM DAILY;
     Route: 048
     Dates: start: 20150410, end: 20150420
  2. ACICLOVIR [Suspect]
     Active Substance: ACYCLOVIR
     Indication: HERPES ZOSTER
     Route: 048
     Dates: start: 20150327, end: 20150407
  3. ACICLOVIR [Suspect]
     Active Substance: ACYCLOVIR
     Indication: HERPES SIMPLEX ENCEPHALITIS
     Route: 042
     Dates: start: 20150410, end: 20150417
  4. VALPROINSAEURE [Suspect]
     Active Substance: VALPROIC ACID
     Indication: EPILEPSY
     Dosage: 600 MILLIGRAM DAILY;
     Route: 042
     Dates: start: 20150410, end: 20150420

REACTIONS (1)
  - Myoclonus [Recovering/Resolving]

NARRATIVE: CASE EVENT DATE: 20150408
